FAERS Safety Report 23846212 (Version 1)
Quarter: 2024Q2

REPORT INFORMATION
  Report Type: Report from Study
  Country: US (occurrence: US)
  Receive Date: 20240512
  Receipt Date: 20240512
  Transmission Date: 20240716
  Serious: Yes (Hospitalization, Other)
  Sender: FDA-Public Use
  Company Number: US-ABBVIE-5752582

PATIENT
  Sex: Male

DRUGS (1)
  1. HUMIRA [Suspect]
     Active Substance: ADALIMUMAB
     Indication: Crohn^s disease
     Route: 058
     Dates: start: 2021

REACTIONS (11)
  - Haemorrhage [Recovering/Resolving]
  - Escherichia infection [Recovering/Resolving]
  - Therapeutic product effect decreased [Unknown]
  - COVID-19 [Unknown]
  - Rash [Recovering/Resolving]
  - Crohn^s disease [Recovering/Resolving]
  - Fatigue [Recovering/Resolving]
  - Memory impairment [Unknown]
  - Mucous stools [Recovered/Resolved]
  - Haematochezia [Not Recovered/Not Resolved]
  - Dehydration [Unknown]

NARRATIVE: CASE EVENT DATE: 20240101
